FAERS Safety Report 8945257 (Version 1)
Quarter: 2012Q4

REPORT INFORMATION
  Report Type: 
  Country: DK (occurrence: DE)
  Receive Date: 20121205
  Receipt Date: 20121205
  Transmission Date: 20130627
  Serious: Yes (Other)
  Sender: FDA-Public Use
  Company Number: DE-FRI-1000040788

PATIENT
  Sex: Female
  Weight: 73 kg

DRUGS (3)
  1. ESCITALOPRAM [Suspect]
     Indication: DEPRESSION
     Dosage: 20 mg
     Route: 048
     Dates: start: 201012
  2. ESCITALOPRAM [Interacting]
     Indication: BURNOUT SYNDROME
  3. PANTOPRAZOL [Interacting]
     Indication: GASTROOESOPHAGEAL REFLUX DISEASE
     Dosage: 40 mg
     Route: 048
     Dates: start: 20111202, end: 20120715

REACTIONS (6)
  - Blood pressure increased [Not Recovered/Not Resolved]
  - Pyrexia [Not Recovered/Not Resolved]
  - Hyperhidrosis [Not Recovered/Not Resolved]
  - Malaise [Not Recovered/Not Resolved]
  - Respiratory rate increased [Not Recovered/Not Resolved]
  - Drug interaction [Not Recovered/Not Resolved]
